FAERS Safety Report 5829841-0 (Version None)
Quarter: 2008Q3

REPORT INFORMATION
  Report Type: 
  Country: None (occurrence: None)
  Receive Date: 20080801
  Receipt Date: 20080723
  Transmission Date: 20090109
  Serious: Yes (Hospitalization)
  Sender: FDA-Public Use
  Company Number: US-AMGEN-QUU296839

PATIENT
  Sex: Male

DRUGS (1)
  1. ENBREL [Suspect]
     Indication: RHEUMATOID ARTHRITIS
     Route: 058
     Dates: start: 20000501

REACTIONS (4)
  - DRUG INEFFECTIVE [None]
  - KNEE ARTHROPLASTY [None]
  - OSTEOARTHRITIS [None]
  - RHEUMATOID ARTHRITIS [None]
